FAERS Safety Report 9886540 (Version 1)
Quarter: 2014Q1

REPORT INFORMATION
  Report Type: Spontaneous
  Country: US (occurrence: US)
  Receive Date: 20140210
  Receipt Date: 20140210
  Transmission Date: 20141002
  Serious: Yes (Other)
  Sender: FDA-Public Use
  Company Number: US-PFIZER INC-2014037402

PATIENT
  Age: 80 Year
  Sex: Female
  Weight: 58.96 kg

DRUGS (11)
  1. CELEBREX [Suspect]
     Indication: RHEUMATOID ARTHRITIS
     Dosage: 200 MG, DAILY
  2. ASPIRIN [Concomitant]
     Dosage: 81 MG, DAILY
  3. ATENOLOL [Concomitant]
     Dosage: 100 MG, 2X/DAY
  4. CRESTOR [Concomitant]
     Dosage: 20 MG, DAILY
  5. ISOSORBIDE [Concomitant]
     Dosage: 30 MG, DAILY
  6. NITROQUICK [Concomitant]
     Indication: ANGINA PECTORIS
     Dosage: 0.4 MG, AS NEEDED
  7. NEXUM [Concomitant]
     Dosage: 40 MG, DAILY
  8. OXYBUTYNIN [Concomitant]
     Dosage: 40 MG, DAILY
  9. PLAVIX [Concomitant]
     Indication: CARDIAC DISORDER
     Dosage: 75 MG, DAILY
  10. RANEXA [Concomitant]
     Indication: CARDIAC DISORDER
     Dosage: UNK
  11. VITAMIN D [Concomitant]
     Dosage: AT AN UNKNOWN DOSE WEEKLY

REACTIONS (2)
  - Arthritis [Unknown]
  - Gallbladder disorder [Unknown]
